FAERS Safety Report 8735868 (Version 2)
Quarter: 2012Q4

REPORT INFORMATION
  Report Type: 
  Country: US (occurrence: US)
  Receive Date: 20120822
  Receipt Date: 20120927
  Transmission Date: 20130627
  Serious: No
  Sender: FDA-Public Use
  Company Number: PHEH2012US016276

PATIENT
  Sex: Female

DRUGS (1)
  1. TASIGNA [Suspect]
     Indication: NEOPLASM MALIGNANT
     Dosage: 400 mg, BID
     Route: 048
     Dates: start: 20110908

REACTIONS (2)
  - Erythema [Recovering/Resolving]
  - Pruritus [Recovered/Resolved]
